FAERS Safety Report 6326171-8 (Version None)
Quarter: 2009Q3

REPORT INFORMATION
  Report Type: 
  Country: None (occurrence: None)
  Receive Date: 20090824
  Receipt Date: 20090824
  Transmission Date: 20100115
  Serious: Yes (Other)
  Sender: FDA-Public Use
  Company Number: US-PFIZER INC-2009247224

PATIENT
  Sex: Female
  Weight: 61.224 kg

DRUGS (6)
  1. LYRICA [Suspect]
     Indication: FIBROMYALGIA
     Dosage: 150 MG, 3X/DAY
     Dates: start: 20080101
  2. ZOLOFT [Concomitant]
  3. PERCOCET [Concomitant]
  4. DROSPIRENONE + ETHINYL ESTRADIOL [Concomitant]
  5. CLARITIN-D [Concomitant]
  6. KLONOPIN [Concomitant]

REACTIONS (10)
  - BEDRIDDEN [None]
  - DIARRHOEA [None]
  - EATING DISORDER [None]
  - NAUSEA [None]
  - PAIN [None]
  - SLEEP DISORDER [None]
  - VISION BLURRED [None]
  - VISUAL IMPAIRMENT [None]
  - WEIGHT INCREASED [None]
  - WITHDRAWAL SYNDROME [None]
